FAERS Safety Report 5016245-6 (Version None)
Quarter: 2006Q2

REPORT INFORMATION
  Report Type: 
  Country: None (occurrence: None)
  Receive Date: 20060414
  Receipt Date: 20060210
  Transmission Date: 20061013
  Serious: No
  Sender: FDA-Public Use
  Company Number: 2006SP000719

PATIENT
  Age: 92 Year
  Sex: Female
  Weight: 53.0709 kg

DRUGS (5)
  1. LUNESTA [Suspect]
     Indication: INSOMNIA
     Dosage: 1 MG;HS;ORAL
     Route: 048
     Dates: start: 20060204, end: 20060206
  2. ALPRAZOLAM [Concomitant]
  3. LOVASTATIN [Concomitant]
  4. GLYBURIDE [Concomitant]
  5. GLUCOPHAGE [Concomitant]

REACTIONS (1)
  - INSOMNIA [None]
